FAERS Safety Report 7481871-1 (Version None)
Quarter: 2011Q2

REPORT INFORMATION
  Report Type: 
  Country: None (occurrence: None)
  Receive Date: 20110516
  Receipt Date: 20110120
  Transmission Date: 20111010
  Serious: Yes (Other)
  Sender: FDA-Public Use
  Company Number: US-BAYER-201038072NA

PATIENT
  Age: 18 Year
  Sex: Female
  Weight: 136 kg

DRUGS (10)
  1. ALLEGRA D 24 HOUR [Concomitant]
     Dosage: UNK
  2. NASONEX [Concomitant]
     Dosage: UNK UNK, PRN
  3. NAPROXEN [Concomitant]
     Dosage: 440 MG, BID
     Route: 048
  4. YASMIN [Suspect]
     Indication: PRODUCT USED FOR UNKNOWN INDICATION
  5. ZOLOFT [Concomitant]
     Dosage: 100 MG, BID
  6. ZYRTEC [Concomitant]
     Dosage: 10 MG, QD
     Route: 048
  7. FERROUS SULFATE TAB [Concomitant]
     Dosage: UNK
     Route: 048
  8. YAZ [Suspect]
     Indication: CONTRACEPTION
     Dosage: UNK
  9. MULTI-VITAMIN [Concomitant]
     Dosage: UNK
     Route: 048
  10. DROSPIRENONE AND ETHINYL ESTRADIOL [Suspect]

REACTIONS (2)
  - INJURY [None]
  - CHOLELITHIASIS [None]
